APPROVED DRUG PRODUCT: WELCHOL
Active Ingredient: COLESEVELAM HYDROCHLORIDE
Strength: 3.75GM
Dosage Form/Route: BAR, CHEWABLE;ORAL
Application: N210895 | Product #001
Applicant: COSETTE PHARMACEUTICALS INC
Approved: Apr 3, 2019 | RLD: Yes | RS: No | Type: DISCN